FAERS Safety Report 6647546-3 (Version None)
Quarter: 2010Q1

REPORT INFORMATION
  Report Type: 
  Country: None (occurrence: None)
  Receive Date: 20100323
  Receipt Date: 20100323
  Transmission Date: 20100710
  Serious: No
  Sender: FDA-Public Use
  Company Number: None

PATIENT
  Sex: Male
  Weight: 117.9352 kg

DRUGS (1)
  1. ZOCOR [Suspect]
     Indication: BLOOD CHOLESTEROL INCREASED
     Dosage: 30MG 1/DAY PO
     Route: 048

REACTIONS (8)
  - AFFECTIVE DISORDER [None]
  - AGGRESSION [None]
  - ANGER [None]
  - ARTHRALGIA [None]
  - COGNITIVE DISORDER [None]
  - MEMORY IMPAIRMENT [None]
  - MYALGIA [None]
  - SUICIDAL IDEATION [None]
